FAERS Safety Report 13045784 (Version 1)
Quarter: 2016Q4

REPORT INFORMATION
  Report Type: Spontaneous
  Country: US (occurrence: US)
  Receive Date: 20161220
  Receipt Date: 20161220
  Transmission Date: 20170207
  Serious: Yes (Disabling)
  Sender: FDA-Public Use
  Company Number: None

PATIENT
  Age: 78 Year
  Sex: Male
  Weight: 104.42 kg

DRUGS (9)
  1. CENTRUM SILVER MULTI VIT [Concomitant]
  2. AMLODIPINE BESYLATE. [Concomitant]
     Active Substance: AMLODIPINE BESYLATE
  3. ASPERIN [Concomitant]
  4. NEBULIZER [Concomitant]
     Active Substance: DEVICE
  5. MELOXICAM. [Concomitant]
     Active Substance: MELOXICAM
  6. MAJOR EYE WASH [Suspect]
     Active Substance: WATER
     Indication: EYE DISORDER
     Dosage: WASH TWICE PER DAY WASHING EYES
     Dates: end: 20161012
  7. HYDROCHLORATHIAZIDE [Concomitant]
     Active Substance: HYDROCHLOROTHIAZIDE
  8. LASARTAN [Concomitant]
  9. OMEPRAZOLE. [Concomitant]
     Active Substance: OMEPRAZOLE

REACTIONS (5)
  - Skin irritation [None]
  - Urinary tract disorder [None]
  - Excessive eye blinking [None]
  - Scratch [None]
  - Impaired driving ability [None]

NARRATIVE: CASE EVENT DATE: 20160912
